APPROVED DRUG PRODUCT: MUPIROCIN
Active Ingredient: MUPIROCIN CALCIUM
Strength: EQ 2% BASE
Dosage Form/Route: CREAM;TOPICAL
Application: A214811 | Product #001 | TE Code: AB
Applicant: AMNEAL PHARMACEUTICALS LLC
Approved: Nov 15, 2022 | RLD: No | RS: No | Type: RX